FAERS Safety Report 5203356-5 (Version None)
Quarter: 2007Q1

REPORT INFORMATION
  Report Type: 
  Country: None (occurrence: None)
  Receive Date: 20070110
  Receipt Date: 20070104
  Transmission Date: 20070707
  Serious: Yes (Hospitalization, Other)
  Sender: FDA-Public Use
  Company Number: US-JNJFOC-20070101098

PATIENT
  Age: 51 Year
  Sex: Male
  Weight: 139 kg

DRUGS (7)
  1. RISPERDAL [Suspect]
     Indication: DRUG USE FOR UNKNOWN INDICATION
     Route: 048
  2. ARICEPT [Suspect]
     Indication: DRUG USE FOR UNKNOWN INDICATION
     Route: 048
  3. CHANTIX [Suspect]
  4. CHANTIX [Suspect]
  5. CHANTIX [Suspect]
     Indication: SMOKING CESSATION THERAPY
  6. BUPROPION HCL [Suspect]
     Indication: SMOKING CESSATION THERAPY
  7. DIGOXIN [Concomitant]

REACTIONS (2)
  - CHRONIC OBSTRUCTIVE PULMONARY DISEASE [None]
  - CONVULSION [None]
